FAERS Safety Report 10182053 (Version 1)
Quarter: 2014Q2

REPORT INFORMATION
  Report Type: Report from Study
  Country: BE (occurrence: BE)
  Receive Date: 20140519
  Receipt Date: 20140519
  Transmission Date: 20141212
  Serious: Yes (Hospitalization)
  Sender: FDA-Public Use
  Company Number: BE-ABBVIE-14P-013-1236554-00

PATIENT
  Sex: Female
  Weight: 79 kg

DRUGS (2)
  1. HUMIRA [Suspect]
     Indication: RHEUMATOID ARTHRITIS
     Route: 058
  2. LEDERTREXATE [Concomitant]
     Indication: ARTHRITIS
     Dosage: 12.5MG/WEEK

REACTIONS (1)
  - Osteoarthritis [Unknown]
